FAERS Safety Report 8168313-8 (Version None)
Quarter: 2012Q1

REPORT INFORMATION
  Report Type: 
  Country: None (occurrence: None)
  Receive Date: 20120222
  Receipt Date: 20120213
  Transmission Date: 20120608
  Serious: Yes (Other)
  Sender: FDA-Public Use
  Company Number: 2011SP057131

PATIENT
  Sex: Female

DRUGS (2)
  1. IMPLANON [Suspect]
     Indication: CONTRACEPTION
     Dosage: 1 DF;
     Dates: start: 20080101, end: 20111201
  2. IMPLANON [Suspect]
     Dates: start: 20080101, end: 20111201

REACTIONS (2)
  - DEVICE BREAKAGE [None]
  - COMPLICATION OF DEVICE REMOVAL [None]
